FAERS Safety Report 20601554 (Version 1)
Quarter: 2022Q1

REPORT INFORMATION
  Report Type: Spontaneous
  Country: US (occurrence: US)
  Receive Date: 20220316
  Receipt Date: 20220316
  Transmission Date: 20220423
  Serious: No
  Sender: FDA-Public Use
  Company Number: US-MEITHEAL-2022MPSPO00008

PATIENT
  Age: 94 Year
  Sex: Female

DRUGS (2)
  1. ENOXAPARIN SODIUM [Suspect]
     Active Substance: ENOXAPARIN SODIUM
     Indication: Thrombosis
     Route: 058
     Dates: start: 202111
  2. ENOXAPARIN SODIUM [Suspect]
     Active Substance: ENOXAPARIN SODIUM

REACTIONS (3)
  - Abdominal discomfort [Not Recovered/Not Resolved]
  - Injection site reaction [Not Recovered/Not Resolved]
  - Pain [Not Recovered/Not Resolved]
